FAERS Safety Report 11731408 (Version 1)
Quarter: 2015Q4

REPORT INFORMATION
  Report Type: Spontaneous
  Country: US (occurrence: US)
  Receive Date: 20151112
  Receipt Date: 20151112
  Transmission Date: 20160304
  Serious: Yes (Other)
  Sender: FDA-Public Use
  Company Number: US-009507513-1511USA005166

PATIENT

DRUGS (1)
  1. REBETOL [Suspect]
     Active Substance: RIBAVIRIN
     Indication: CONGO-CRIMEAN HAEMORRHAGIC FEVER
     Route: 048

REACTIONS (2)
  - Product use issue [Unknown]
  - Bradycardia [Recovered/Resolved]
